FAERS Safety Report 6668290-2 (Version None)
Quarter: 2010Q2

REPORT INFORMATION
  Report Type: 
  Country: None (occurrence: None)
  Receive Date: 20100406
  Receipt Date: 20100326
  Transmission Date: 20101027
  Serious: Yes (Other)
  Sender: FDA-Public Use
  Company Number: US-RB-005659-10

PATIENT
  Age: 62 Year
  Sex: Female

DRUGS (2)
  1. MUCINEX D [Suspect]
     Dosage: TAKEN ONE IN A MORNING AND ONE AT NIGHT FOR 4-5 YEARS.
     Route: 048
  2. OXYGEN [Concomitant]

REACTIONS (6)
  - DIZZINESS [None]
  - EPISTAXIS [None]
  - NASAL DISCOMFORT [None]
  - NASAL DISORDER [None]
  - PALPITATIONS [None]
  - UPPER RESPIRATORY TRACT CONGESTION [None]
